FAERS Safety Report 19949583 (Version 1)
Quarter: 2021Q4

REPORT INFORMATION
  Report Type: Spontaneous
  Country: US (occurrence: US)
  Receive Date: 20211008
  Receipt Date: 20211008
  Transmission Date: 20220304
  Serious: Yes (Other)
  Sender: FDA-Public Use
  Company Number: None

PATIENT
  Age: 69 Year
  Sex: Female
  Weight: 73.9 kg

DRUGS (1)
  1. PACLITAXEL [Suspect]
     Active Substance: PACLITAXEL
     Indication: Ovarian cancer
     Route: 048
     Dates: start: 20210924, end: 20211001

REACTIONS (2)
  - Haemoglobin decreased [None]
  - Neutrophil function disorder [None]

NARRATIVE: CASE EVENT DATE: 20211008
